FAERS Safety Report 23538045 (Version 2)
Quarter: 2024Q2

REPORT INFORMATION
  Report Type: Spontaneous
  Country: PT (occurrence: PT)
  Receive Date: 20240219
  Receipt Date: 20240507
  Transmission Date: 20240716
  Serious: Yes (Other)
  Sender: FDA-Public Use
  Company Number: PT-PFIZER INC-PV202400015063

PATIENT
  Age: 37 Year
  Sex: Male

DRUGS (7)
  1. VORICONAZOLE [Suspect]
     Active Substance: VORICONAZOLE
     Indication: Bronchopulmonary aspergillosis
     Dosage: 12 MILLIGRAM/KILOGRAM, ONCE A DAY (ON DAY +8, WITH A LOADING DOSE OF 6 MG/KG OR 400 MG TWICE DAILY (
     Route: 065
  2. VORICONAZOLE [Suspect]
     Active Substance: VORICONAZOLE
     Indication: Haemoptysis
     Dosage: 8 MILLIGRAM/KILOGRAM, ONCE A DAY (MAINTENANCE DOSE OF 4 MG/KG OR 300 MG Q12H)
     Route: 065
  3. VORICONAZOLE [Suspect]
     Active Substance: VORICONAZOLE
     Indication: Aspergillus infection
     Dosage: 300 MILLIGRAM, TWO TIMES A DAY
     Route: 065
  4. VORICONAZOLE [Suspect]
     Active Substance: VORICONAZOLE
     Dosage: 400 MILLIGRAM, TWO TIMES A DAY
     Route: 065
  5. PIPERACILLIN AND TAZOBACTAM [Concomitant]
     Active Substance: PIPERACILLIN SODIUM\TAZOBACTAM SODIUM
     Indication: Pseudomonas infection
     Dosage: UNK, CYCLICAL (MAINTAINED FOR 21 DAYS, CYCLIC)
     Route: 065
  6. CIPROFLOXACIN [Concomitant]
     Active Substance: CIPROFLOXACIN
     Indication: Aspergillus infection
     Dosage: UNK
     Route: 065
  7. COLISTIN [Concomitant]
     Active Substance: COLISTIN
     Indication: Aspergillus infection
     Dosage: UNK
     Route: 055

REACTIONS (2)
  - Pathogen resistance [Unknown]
  - Drug ineffective [Recovered/Resolved]
